FAERS Safety Report 7813748-3 (Version None)
Quarter: 2011Q4

REPORT INFORMATION
  Report Type: 
  Country: None (occurrence: None)
  Receive Date: 20111014
  Receipt Date: 20111006
  Transmission Date: 20120403
  Serious: Yes (Other)
  Sender: FDA-Public Use
  Company Number: FR-CEPHALON-US023594

PATIENT
  Sex: Male
  Weight: 80 kg

DRUGS (11)
  1. IRBESARTAN [Concomitant]
     Indication: HYPERTENSION
     Dates: start: 19940101
  2. CARVEDILOL [Concomitant]
     Indication: HYPERTENSION
     Dates: start: 20050101
  3. EZETIMIBE [Concomitant]
     Dates: start: 20070101
  4. MODAFANIL [Suspect]
     Indication: SLEEP APNOEA SYNDROME
     Route: 048
     Dates: start: 20030301
  5. MODAFANIL [Suspect]
     Indication: SOMNOLENCE
     Route: 048
     Dates: start: 20030301
  6. EFFEXOR [Concomitant]
     Indication: ASTHENIA
     Route: 065
  7. EFFEXOR [Concomitant]
     Indication: FIBROMYALGIA
  8. AMLODIPINE BESYLATE [Concomitant]
     Indication: HYPERTENSION
     Dates: start: 19950101
  9. FLECAINIDE ACETATE [Concomitant]
     Indication: ARRHYTHMIA
     Dates: start: 19970101
  10. PREVISCAN [Concomitant]
     Indication: ARRHYTHMIA
     Dates: start: 20080101
  11. TAHOR 40 [Concomitant]
     Dates: end: 20070301

REACTIONS (10)
  - DIZZINESS [None]
  - DEREALISATION [None]
  - HYPERHIDROSIS [None]
  - DRY MOUTH [None]
  - DRUG TOLERANCE [None]
  - ANXIETY [None]
  - COGNITIVE DISORDER [None]
  - ASTHENIA [None]
  - MYALGIA [None]
  - FEELING DRUNK [None]
